FAERS Safety Report 20523157 (Version 1)
Quarter: 2022Q1

REPORT INFORMATION
  Report Type: Spontaneous
  Country: US (occurrence: US)
  Receive Date: 20220227
  Receipt Date: 20220227
  Transmission Date: 20220423
  Serious: Yes (Other)
  Sender: FDA-Public Use
  Company Number: US-TEVA-2022-US-2010192

PATIENT
  Age: 12 Year
  Sex: Male

DRUGS (1)
  1. ATOMOXETINE [Suspect]
     Active Substance: ATOMOXETINE
     Route: 065

REACTIONS (9)
  - Suicidal ideation [Recovered/Resolved]
  - Nightmare [Unknown]
  - Product dose omission issue [Unknown]
  - Behaviour disorder [Unknown]
  - Irritability [Unknown]
  - Somnolence [Unknown]
  - Aggression [Unknown]
  - Drug ineffective [Unknown]
  - Vomiting [Unknown]
